FAERS Safety Report 16900688 (Version 2)
Quarter: 2019Q4

REPORT INFORMATION
  Report Type: Report from Study
  Country: US (occurrence: US)
  Receive Date: 20191009
  Receipt Date: 20191202
  Transmission Date: 20200122
  Serious: No
  Sender: FDA-Public Use
  Company Number: US-SA-2019SA271617

PATIENT
  Age: 53 Year
  Sex: Female

DRUGS (6)
  1. BIOTIN [Concomitant]
     Active Substance: BIOTIN
  2. ADVIL [IBUPROFEN] [Concomitant]
     Active Substance: IBUPROFEN
  3. VITAMIN D3 [Concomitant]
     Active Substance: CHOLECALCIFEROL
  4. TERIFLUNOMIDE. [Suspect]
     Active Substance: TERIFLUNOMIDE
     Indication: MULTIPLE SCLEROSIS
     Dosage: 14 MG, QD
     Route: 048
     Dates: start: 20190830
  5. CYANOCOBALAMINE [Concomitant]
     Active Substance: CYANOCOBALAMIN
  6. ESTROVEN [Concomitant]
     Active Substance: DIETARY SUPPLEMENT

REACTIONS (18)
  - Pyrexia [Unknown]
  - Unevaluable event [Unknown]
  - Nasopharyngitis [Unknown]
  - Influenza like illness [Unknown]
  - Oropharyngeal pain [Recovering/Resolving]
  - Sneezing [Unknown]
  - Diarrhoea [Recovered/Resolved]
  - Migraine [Unknown]
  - Rhinorrhoea [Unknown]
  - Wheezing [Unknown]
  - Musculoskeletal stiffness [Unknown]
  - Condition aggravated [Unknown]
  - Nasal congestion [Unknown]
  - Constipation [Unknown]
  - Condition aggravated [Unknown]
  - Lacrimation increased [Unknown]
  - Pain [Unknown]
  - Ear pain [Recovering/Resolving]

NARRATIVE: CASE EVENT DATE: 2019
